FAERS Safety Report 17431748 (Version 6)
Quarter: 2020Q2

REPORT INFORMATION
  Report Type: Spontaneous
  Country: JP (occurrence: JP)
  Receive Date: 20200218
  Receipt Date: 20200518
  Transmission Date: 20200713
  Serious: Yes (Death, Hospitalization, Other)
  Sender: FDA-Public Use
  Company Number: JP-009507513-2002JPN001381J

PATIENT
  Age: 54 Year
  Sex: Female
  Weight: 44 kg

DRUGS (10)
  1. NARURAPID [Concomitant]
     Active Substance: HYDROMORPHONE HYDROCHLORIDE
     Indication: CANCER PAIN
     Dosage: 1 MILLIGRAM, PRN
     Route: 048
     Dates: start: 20200125, end: 20200218
  2. NAIXAN [Concomitant]
     Active Substance: NAPROXEN SODIUM
     Indication: PYREXIA
     Dosage: 100MG, 3 TABLETS / DAY
     Route: 048
     Dates: start: 20191225, end: 20200202
  3. KEYTRUDA [Suspect]
     Active Substance: PEMBROLIZUMAB
     Indication: ENDOMETRIAL CANCER
     Dosage: 200 MILLIGRAM, Q3W
     Route: 041
     Dates: start: 20200120, end: 20200120
  4. METOCLOPRAMIDE. [Concomitant]
     Active Substance: METOCLOPRAMIDE
     Indication: NAUSEA
     Dosage: 5MG, 3 TABLETS / DAY
     Route: 048
     Dates: start: 20200114
  5. RABEPRAZOLE NA [Concomitant]
     Active Substance: RABEPRAZOLE SODIUM
     Indication: GASTRITIS
     Dosage: 10 MILLIGRAM, QD
     Route: 048
     Dates: start: 20191225
  6. MIYA-BM [Concomitant]
     Active Substance: CLOSTRIDIUM BUTYRICUM SPORES STRAIN M-55
     Indication: CONSTIPATION
     Dosage: 20MG, 3 TABLETS / DAY
     Route: 048
     Dates: start: 20200115
  7. FENTOS [Concomitant]
     Active Substance: FENTANYL
     Indication: CANCER PAIN
     Dosage: 2 MILLIGRAM, QD
     Dates: start: 20200125, end: 20200218
  8. SYMPROIC [Concomitant]
     Active Substance: NALDEMEDINE
     Indication: CONSTIPATION
     Dosage: 0.2 MILLIGRAM, QD
     Route: 048
     Dates: start: 20200114, end: 20200225
  9. KEYTRUDA [Suspect]
     Active Substance: PEMBROLIZUMAB
     Dosage: 200 MILLIGRAM, Q3W
     Route: 041
     Dates: start: 2020, end: 2020
  10. LAGNOS JELLY [Concomitant]
     Indication: CONSTIPATION
     Dosage: 12 GRAM, 4 PACKETS / DAY
     Route: 048
     Dates: start: 20200121

REACTIONS (7)
  - Haematuria [Unknown]
  - Anaemia [Not Recovered/Not Resolved]
  - Peripheral swelling [Recovered/Resolved]
  - Genital haemorrhage [Recovering/Resolving]
  - Tumour necrosis [Unknown]
  - Malignant neoplasm progression [Fatal]
  - Bladder injury [Unknown]

NARRATIVE: CASE EVENT DATE: 2020
